FAERS Safety Report 6870585-4 (Version None)
Quarter: 2010Q3

REPORT INFORMATION
  Report Type: 
  Country: None (occurrence: None)
  Receive Date: 20100721
  Receipt Date: 20100712
  Transmission Date: 20110219
  Serious: Yes (Hospitalization)
  Sender: FDA-Public Use
  Company Number: 2010MA000763

PATIENT
  Age: 67 Year
  Sex: Female

DRUGS (5)
  1. MIRTAZAPINE [Suspect]
     Indication: DEPRESSION
     Dosage: 15 MG; HS; PO
     Route: 048
     Dates: start: 20100331, end: 20100404
  2. OXXCONTIN [Concomitant]
  3. DIAZEPAM TABLETS USP, MG (PUREPAC) [Concomitant]
  4. ZOLOFT [Concomitant]
  5. EFFEXOR [Concomitant]

REACTIONS (2)
  - NEUROLEPTIC MALIGNANT SYNDROME [None]
  - SEROTONIN SYNDROME [None]
